FAERS Safety Report 16819579 (Version 6)
Quarter: 2020Q1

REPORT INFORMATION
  Report Type: Report from Study
  Country: US (occurrence: US)
  Receive Date: 20190917
  Receipt Date: 20200124
  Transmission Date: 20200409
  Serious: Yes (Hospitalization, Other)
  Sender: FDA-Public Use
  Company Number: US-ACTELION-A-NJ2018-169121

PATIENT
  Age: 57 Year
  Sex: Female
  Weight: 70.3 kg

DRUGS (9)
  1. SPIRONOLACTONE. [Concomitant]
     Active Substance: SPIRONOLACTONE
     Dosage: 25 MG, QD
  2. TRACLEER [Suspect]
     Active Substance: BOSENTAN
     Indication: PULMONARY HYPERTENSION
  3. TRACLEER [Suspect]
     Active Substance: BOSENTAN
     Indication: PULMONARY ARTERIAL HYPERTENSION
     Dosage: 125 MG, BID
     Route: 048
     Dates: start: 2008
  4. URSODIOL. [Concomitant]
     Active Substance: URSODIOL
     Dosage: 300 MCG, BID
  5. LEVAQUIN [Concomitant]
     Active Substance: LEVOFLOXACIN
  6. ELIQUIS [Concomitant]
     Active Substance: APIXABAN
     Dosage: 2.5 MG, BID
  7. VITAMIN D2 [Suspect]
     Active Substance: ERGOCALCIFEROL
     Indication: VITAMIN D DEFICIENCY
     Dosage: 50000 UNITS PER WEEK
     Route: 065
  8. TORSEMIDE. [Concomitant]
     Active Substance: TORSEMIDE
     Dosage: 10 MG, TID
  9. DIGOXIN. [Concomitant]
     Active Substance: DIGOXIN
     Dosage: 125 MCG, QD

REACTIONS (15)
  - Vomiting [Unknown]
  - Hospitalisation [Unknown]
  - Dyspnoea [Recovered/Resolved]
  - Skin lesion [Unknown]
  - Atrial fibrillation [Recovered/Resolved]
  - Heart rate increased [Unknown]
  - Musculoskeletal chest pain [Unknown]
  - Pneumonia [Unknown]
  - Cardioversion [Recovered/Resolved]
  - Blood glucose increased [Unknown]
  - Dizziness [Recovered/Resolved]
  - Vitamin D deficiency [Unknown]
  - Nausea [Unknown]
  - Epistaxis [Unknown]
  - Fluid retention [Unknown]

NARRATIVE: CASE EVENT DATE: 201906
